FAERS Safety Report 4581565-6 (Version None)
Quarter: 2005Q1

REPORT INFORMATION
  Report Type: 
  Country: None (occurrence: None)
  Receive Date: 20050214
  Receipt Date: 20041118
  Transmission Date: 20050727
  Serious: No
  Sender: FDA-Public Use
  Company Number: US-GLAXOSMITHKLINE-A0534485A

PATIENT
  Age: 74 Year
  Sex: Female

DRUGS (5)
  1. LAMICTAL [Suspect]
     Indication: ILL-DEFINED DISORDER
     Dosage: 100MG TWO TIMES PER WEEK
     Route: 048
  2. ACETONE [Concomitant]
  3. ALTOCOR [Concomitant]
  4. LISINOPRIL [Concomitant]
  5. PROCARDIA [Concomitant]

REACTIONS (1)
  - ALOPECIA [None]
